FAERS Safety Report 12662268 (Version 4)
Quarter: 2016Q4

REPORT INFORMATION
  Report Type: Report from Study
  Country: US (occurrence: US)
  Receive Date: 20160817
  Receipt Date: 20161013
  Transmission Date: 20170207
  Serious: Yes (Other)
  Sender: FDA-Public Use
  Company Number: US-JNJFOC-20160811134

PATIENT
  Age: 65 Year
  Sex: Male

DRUGS (13)
  1. SALICYLIC ACID. [Concomitant]
     Active Substance: SALICYLIC ACID
  2. VALACYCLOVIR [Concomitant]
     Active Substance: VALACYCLOVIR HYDROCHLORIDE
  3. OMEPRAZOLE. [Concomitant]
     Active Substance: OMEPRAZOLE
  4. LEVOFLOXACIN. [Concomitant]
     Active Substance: LEVOFLOXACIN
  5. BIOTIN [Concomitant]
     Active Substance: BIOTIN
  6. VITAMIN D [Concomitant]
     Active Substance: CHOLECALCIFEROL
  7. FLOMAX [Concomitant]
     Active Substance: TAMSULOSIN HYDROCHLORIDE
  8. BACLOFEN. [Concomitant]
     Active Substance: BACLOFEN
  9. IMBRUVICA [Suspect]
     Active Substance: IBRUTINIB
     Indication: MYELOID LEUKAEMIA
     Route: 048
     Dates: start: 20160529, end: 20160730
  10. IBUPROFEN. [Concomitant]
     Active Substance: IBUPROFEN
  11. LINUM USITATISSIMUM SEED [Concomitant]
  12. VALERIANA OFFICINALIS ROOT [Concomitant]
     Active Substance: VALERIAN
  13. MENTHOL W/METHYL SALICYLATE [Concomitant]
     Active Substance: MENTHOL\METHYL SALICYLATE

REACTIONS (3)
  - Prostatomegaly [Unknown]
  - Off label use [Recovered/Resolved]
  - Product use issue [Recovered/Resolved]

NARRATIVE: CASE EVENT DATE: 20160529
